FAERS Safety Report 7059461-4 (Version None)
Quarter: 2010Q4

REPORT INFORMATION
  Report Type: 
  Country: None (occurrence: None)
  Receive Date: 20101025
  Receipt Date: 20101015
  Transmission Date: 20110411
  Serious: Yes (Hospitalization)
  Sender: FDA-Public Use
  Company Number: US-JNJFOC-20101004954

PATIENT
  Sex: Female
  Weight: 54.43 kg

DRUGS (7)
  1. FENTANYL [Suspect]
     Indication: PAIN
     Route: 062
  2. FENTANYL [Suspect]
     Dosage: NDC# 0781-7243-55
     Route: 062
  3. FENTANYL [Suspect]
     Indication: PANCREATITIS CHRONIC
     Dosage: NDC# 0781-7243-55
     Route: 062
  4. FENTANYL [Suspect]
     Route: 062
  5. FENTANYL CITRATE [Suspect]
     Indication: PANCREATITIS CHRONIC
     Route: 062
  6. OXYCODONE [Concomitant]
     Indication: BREAKTHROUGH PAIN
     Route: 048
  7. POTASSIUM [Concomitant]
     Indication: PANCREATIC DISORDER
     Route: 048

REACTIONS (6)
  - FALL [None]
  - HAEMOGLOBIN DECREASED [None]
  - HIP FRACTURE [None]
  - INAPPROPRIATE SCHEDULE OF DRUG ADMINISTRATION [None]
  - PRODUCT ADHESION ISSUE [None]
  - WRONG TECHNIQUE IN DRUG USAGE PROCESS [None]
